FAERS Safety Report 4301017-8 (Version None)
Quarter: 2004Q1

REPORT INFORMATION
  Report Type: 
  Country: None (occurrence: None)
  Receive Date: 20040219
  Receipt Date: 20040211
  Transmission Date: 20041129
  Serious: Yes (Hospitalization)
  Sender: FDA-Public Use
  Company Number: 2004PK00325

PATIENT
  Age: 69 Year
  Sex: Female
  Weight: 62 kg

DRUGS (5)
  1. METOPROLOL SUCCINATE [Suspect]
     Indication: HYPERTENSION
     Dosage: 95 MG DAILY PO
     Route: 048
     Dates: start: 20000101
  2. ACTRAPID HUMAN [Suspect]
     Indication: DIABETES MELLITUS
     Dosage: 34 IU DAILY SQ
     Dates: start: 19970101
  3. ALLOPURINOL [Concomitant]
  4. LASIX [Concomitant]
  5. PROTAPHAN [Concomitant]

REACTIONS (4)
  - DRUG INTERACTION [None]
  - HYPERHIDROSIS [None]
  - LOSS OF CONSCIOUSNESS [None]
  - SHOCK HYPOGLYCAEMIC [None]
